FAERS Safety Report 10300993 (Version 3)
Quarter: 2014Q4

REPORT INFORMATION
  Report Type: Spontaneous
  Country: CN (occurrence: CN)
  Receive Date: 20140714
  Receipt Date: 20141014
  Transmission Date: 20150528
  Serious: Yes (Hospitalization, Other)
  Sender: FDA-Public Use
  Company Number: CN-RANBAXY-2014RR-83323

PATIENT
  Age: 17 Year
  Sex: Female

DRUGS (1)
  1. PARACETAMOL [Suspect]
     Active Substance: ACETAMINOPHEN
     Indication: PYREXIA
     Dosage: 300 MG, DAILY
     Route: 065

REACTIONS (1)
  - Electrocardiogram T wave inversion [Recovered/Resolved]
